FAERS Safety Report 26169213 (Version 1)
Quarter: 2025Q4

REPORT INFORMATION
  Report Type: Spontaneous
  Country: US (occurrence: None)
  Receive Date: 20251217
  Receipt Date: 20251217
  Transmission Date: 20260118
  Serious: Yes (Hospitalization)
  Sender: FDA-CTU
  Company Number: None

PATIENT
  Age: 55 Year
  Sex: Male
  Weight: 97 kg

DRUGS (4)
  1. APIXABAN [Suspect]
     Active Substance: APIXABAN
     Indication: Deep vein thrombosis
     Dosage: 5 MG BID PO
     Route: 048
     Dates: start: 20230727
  2. CLOPIDOGREL BISULFATE [Suspect]
     Active Substance: CLOPIDOGREL BISULFATE
     Dosage: 75 MG EVERY DAY PO
     Route: 048
     Dates: start: 20231218
  3. NAPROXEN [Suspect]
     Active Substance: NAPROXEN
  4. IBUPROFEN [Suspect]
     Active Substance: IBUPROFEN
     Indication: Deep vein thrombosis

REACTIONS (3)
  - Gastric ulcer [None]
  - Melaena [None]
  - Anaemia [None]

NARRATIVE: CASE EVENT DATE: 20250506
